FAERS Safety Report 5299295-4 (Version None)
Quarter: 2007Q2

REPORT INFORMATION
  Report Type: 
  Country: None (occurrence: None)
  Receive Date: 20070417
  Receipt Date: 20070410
  Transmission Date: 20071010
  Serious: Yes (Hospitalization)
  Sender: FDA-Public Use
  Company Number: CG-MERCK-0704USA01680

PATIENT
  Age: 39 Year
  Sex: Female

DRUGS (1)
  1. STROMECTOL [Suspect]
     Indication: PROPHYLAXIS
     Route: 048
     Dates: start: 20060411, end: 20060411

REACTIONS (3)
  - HEADACHE [None]
  - OCULAR HYPERAEMIA [None]
  - VERTIGO [None]
